FAERS Safety Report 17980665 (Version 1)
Quarter: 2020Q3

REPORT INFORMATION
  Report Type: Spontaneous
  Country: HU (occurrence: HU)
  Receive Date: 20200704
  Receipt Date: 20200704
  Transmission Date: 20201103
  Serious: Yes (Other)
  Sender: FDA-Public Use
  Company Number: HU-ROCHE-2633012

PATIENT
  Age: 48 Year
  Sex: Female

DRUGS (8)
  1. ZARZIO [Concomitant]
     Active Substance: FILGRASTIM
     Indication: NEUTROPENIA
     Route: 065
  2. ZOLADEX [Concomitant]
     Active Substance: GOSERELIN ACETATE
     Indication: BREAST CANCER
     Route: 058
  3. BISOBLOCK [Concomitant]
     Active Substance: BISOPROLOL FUMARATE
     Indication: ARRHYTHMIA
     Route: 048
  4. PERJETA [Suspect]
     Active Substance: PERTUZUMAB
     Indication: BREAST CANCER
     Dosage: MOST RECENT DOSE: 24/APR/2020
     Route: 042
     Dates: start: 20200306
  5. VITAMIN D3 [Concomitant]
     Active Substance: CHOLECALCIFEROL
     Indication: CHEMOTHERAPY SIDE EFFECT PROPHYLAXIS
     Route: 048
  6. SOLU?MEDROL [Concomitant]
     Active Substance: METHYLPREDNISOLONE SODIUM SUCCINATE
     Indication: PREMEDICATION
     Dosage: MOST RECENT DOSE: 24/APR/2020
     Route: 065
     Dates: start: 20200306
  7. ONDANSETRON [Concomitant]
     Active Substance: ONDANSETRON
     Indication: PREMEDICATION
     Dosage: MOST RECENT DOSE: 24/APR/2020
     Route: 042
     Dates: start: 20200306
  8. DOCETAXEL. [Suspect]
     Active Substance: DOCETAXEL
     Indication: BREAST CANCER
     Dosage: MOST RECENT DOSE: 24/APR/2020
     Route: 042
     Dates: start: 20200306

REACTIONS (6)
  - Rash [Recovering/Resolving]
  - Skin exfoliation [Recovering/Resolving]
  - Pruritus [Recovering/Resolving]
  - Oedema peripheral [Recovered/Resolved]
  - Eyelid oedema [Recovered/Resolved]
  - Skin abrasion [Recovering/Resolving]

NARRATIVE: CASE EVENT DATE: 20200327
